FAERS Safety Report 7442717-0 (Version None)
Quarter: 2011Q2

REPORT INFORMATION
  Report Type: 
  Country: None (occurrence: None)
  Receive Date: 20110428
  Receipt Date: 20101110
  Transmission Date: 20111010
  Serious: Yes (Hospitalization, Other)
  Sender: FDA-Public Use
  Company Number: US-BAYER-201028006NA

PATIENT
  Age: 22 Year
  Sex: Female
  Weight: 61.364 kg

DRUGS (5)
  1. YASMIN [Suspect]
     Indication: PAIN
     Dosage: UNK
     Route: 048
     Dates: start: 20050901, end: 20080125
  2. ACETAMINOPHEN [Concomitant]
     Indication: PAIN
     Dates: start: 19980101, end: 20100101
  3. NEXIUM [Concomitant]
     Indication: GASTROOESOPHAGEAL REFLUX DISEASE
     Dosage: UNK
     Dates: end: 20080125
  4. ADVIL [Concomitant]
     Indication: PAIN
     Dates: start: 19980101, end: 20100101
  5. NEXIUM [Concomitant]
     Indication: GASTRITIS

REACTIONS (5)
  - CHOLECYSTITIS CHRONIC [None]
  - CHOLELITHIASIS [None]
  - BILIARY COLIC [None]
  - POST PROCEDURAL COMPLICATION [None]
  - PAIN [None]
